FAERS Safety Report 10264084 (Version 1)
Quarter: 2014Q2

REPORT INFORMATION
  Report Type: Spontaneous
  Country: US (occurrence: US)
  Receive Date: 20140627
  Receipt Date: 20140627
  Transmission Date: 20141212
  Serious: No
  Sender: FDA-Public Use
  Company Number: US-BIOGENIDEC-2014BI059250

PATIENT
  Age: 38 Year
  Sex: Female

DRUGS (7)
  1. TECFIDERA [Suspect]
     Indication: MULTIPLE SCLEROSIS
     Route: 048
     Dates: start: 20130830
  2. ALEVE [Concomitant]
  3. GABAPENTIN [Concomitant]
  4. OXYBUTYNIN CHLORIDE [Concomitant]
  5. TOPIRAMATE [Concomitant]
  6. TRINESSA (28) [Concomitant]
  7. TYLENOL PM EXTRA STRENGTH [Concomitant]

REACTIONS (1)
  - Urticaria [Unknown]
